FAERS Safety Report 20465326 (Version 1)
Quarter: 2022Q1

REPORT INFORMATION
  Report Type: Spontaneous
  Country: None (occurrence: US)
  Receive Date: 20220212
  Receipt Date: 20220212
  Transmission Date: 20220423
  Serious: Yes (Hospitalization, Other)
  Sender: FDA-Public Use
  Company Number: US-Sunstar Americas Inc.-2125830

PATIENT
  Sex: Male
  Weight: 85.7 kg

DRUGS (120)
  1. PAROEX [Suspect]
     Active Substance: CHLORHEXIDINE GLUCONATE
     Indication: Pharyngitis
     Route: 002
     Dates: start: 202008, end: 20201028
  2. ACETAZOLAMIDE [Concomitant]
     Active Substance: ACETAZOLAMIDE
     Route: 002
     Dates: start: 20200826, end: 20201001
  3. SODIUM CHLORIDE [Concomitant]
     Active Substance: SODIUM CHLORIDE
     Route: 042
     Dates: start: 20200828, end: 20200921
  4. BSS [Concomitant]
     Active Substance: CALCIUM CHLORIDE\MAGNESIUM CHLORIDE\POTASSIUM CHLORIDE\SODIUM ACETATE\SODIUM CHLORIDE\SODIUM CITRATE
     Route: 031
     Dates: start: 20200821, end: 20200904
  5. SODIUM CHLORIDE [Concomitant]
     Active Substance: SODIUM CHLORIDE
     Route: 042
     Dates: start: 20200917, end: 20200925
  6. SODIUM CHLORIDE [Concomitant]
     Active Substance: SODIUM CHLORIDE
     Dates: start: 20200906, end: 20200906
  7. NOREPINEPHRINE [Concomitant]
     Active Substance: NOREPINEPHRINE
     Route: 042
     Dates: start: 20200819, end: 20200819
  8. PROPOFOL [Concomitant]
     Active Substance: PROPOFOL
     Route: 042
     Dates: start: 20200922, end: 20200922
  9. DIPRIVAN [Concomitant]
     Active Substance: PROPOFOL
     Route: 042
     Dates: start: 20200921, end: 20200921
  10. MIDAZOLAM [Concomitant]
     Active Substance: MIDAZOLAM
     Route: 042
     Dates: start: 20200906, end: 20200906
  11. KETAMINE HYDROCHLORIDE [Concomitant]
     Active Substance: KETAMINE HYDROCHLORIDE
     Route: 042
     Dates: start: 20200921, end: 20200921
  12. VANCOMYCIN HYDROCHLORIDE [Concomitant]
     Active Substance: VANCOMYCIN HYDROCHLORIDE
     Route: 042
     Dates: start: 20200819, end: 20200819
  13. MIDAZOLAM [Concomitant]
     Active Substance: MIDAZOLAM
     Route: 042
     Dates: start: 20200819, end: 20200924
  14. MIDAZOLAM [Concomitant]
     Active Substance: MIDAZOLAM
     Route: 042
     Dates: start: 20200922, end: 20200922
  15. MIDAZOLAM [Concomitant]
     Active Substance: MIDAZOLAM
     Route: 042
     Dates: start: 20200923, end: 20200923
  16. MIDODRINE HYDROCHLORIDE [Concomitant]
     Active Substance: MIDODRINE HYDROCHLORIDE
     Route: 002
     Dates: start: 20200819, end: 20200819
  17. OXYCODONE. [Concomitant]
     Active Substance: OXYCODONE HYDROCHLORIDE
     Route: 048
     Dates: start: 20200928, end: 20201003
  18. MORPHINE SULFATE [Concomitant]
     Active Substance: MORPHINE SULFATE
     Route: 042
     Dates: start: 20200918, end: 20201001
  19. ONDANSETRON [Concomitant]
     Active Substance: ONDANSETRON
     Route: 042
     Dates: start: 20200928, end: 20201003
  20. QUETIAPINE [Concomitant]
     Active Substance: QUETIAPINE
     Route: 002
     Dates: start: 20200923, end: 20200923
  21. SIMETHICONE (DIMETHICONE) [Concomitant]
     Active Substance: DIMETHICONE
     Route: 002
     Dates: start: 20200821, end: 20200904
  22. SENNA LIQUID [Concomitant]
     Active Substance: SENNOSIDES
     Route: 048
     Dates: start: 20200819, end: 20201003
  23. SILVER NITRATE APPLICATORS [Concomitant]
     Active Substance: SILVER NITRATE
     Dates: start: 20200928, end: 20200928
  24. QUETIAPINE [Concomitant]
     Active Substance: QUETIAPINE
     Route: 002
     Dates: start: 20200905, end: 20200922
  25. SCOPOLAMINE HYDROBROMIDE [Concomitant]
     Active Substance: SCOPOLAMINE HYDROBROMIDE
     Route: 062
     Dates: start: 20200914, end: 20200914
  26. ALBUMINAR-5 [Concomitant]
     Active Substance: ALBUMIN HUMAN
     Route: 042
     Dates: start: 20200922, end: 20200922
  27. ALBUMINAR-5 [Concomitant]
     Active Substance: ALBUMIN HUMAN
     Route: 042
     Dates: start: 20200820, end: 20200917
  28. ALBUMINAR-25 [Concomitant]
     Active Substance: ALBUMIN HUMAN
     Route: 042
     Dates: start: 20200821, end: 20200917
  29. DIGOXIN [Concomitant]
     Active Substance: DIGOXIN
     Route: 042
     Dates: start: 20200829, end: 20200829
  30. DEXTROSE MONOHYDRATE [Concomitant]
     Active Substance: DEXTROSE MONOHYDRATE
     Route: 042
     Dates: start: 20200825, end: 20200928
  31. AMIODARONE HYDROCHLORIDE [Concomitant]
     Active Substance: AMIODARONE HYDROCHLORIDE
     Route: 002
     Dates: start: 20200904, end: 20201003
  32. ARTIFICIAL TEARS [Concomitant]
     Active Substance: GLYCERIN\HYPROMELLOSES\POLYETHYLENE GLYCOL 400
     Route: 048
     Dates: start: 20200819, end: 20200819
  33. ASPIRIN [Concomitant]
     Active Substance: ASPIRIN
     Route: 002
     Dates: start: 20200820, end: 20201002
  34. BACITRACIN ZINC AND POLYMYXIN B SULFATE [Concomitant]
     Active Substance: BACITRACIN ZINC\POLYMYXIN B SULFATE
     Route: 061
     Dates: start: 20200921, end: 20200921
  35. BISACODYL [Concomitant]
     Active Substance: BISACODYL
     Route: 054
     Dates: start: 20200823, end: 20200823
  36. BISACODYL [Concomitant]
     Active Substance: BISACODYL
     Route: 002
     Dates: start: 20200823, end: 20200909
  37. CLONAZEPAM [Concomitant]
     Active Substance: CLONAZEPAM
     Route: 002
     Dates: start: 20200930, end: 20201003
  38. CALCIUM CHLORIDE [Concomitant]
     Active Substance: CALCIUM CHLORIDE
     Route: 042
     Dates: start: 20200819, end: 20200928
  39. CISATRACURIUM [Concomitant]
     Active Substance: CISATRACURIUM
     Route: 042
     Dates: start: 20200908, end: 20200913
  40. CEFAZOLIN SODIUM [Concomitant]
     Active Substance: CEFAZOLIN SODIUM
     Route: 042
     Dates: start: 20200909, end: 20200909
  41. CEFEPIME [Concomitant]
     Active Substance: CEFEPIME HYDROCHLORIDE
     Route: 048
     Dates: start: 20200819, end: 20200904
  42. CHLOROTHIAZIDE [Concomitant]
     Active Substance: CHLOROTHIAZIDE
     Route: 042
     Dates: start: 20200926, end: 20201003
  43. DOCUSATE SODIUM [Concomitant]
     Active Substance: DOCUSATE SODIUM
     Dates: start: 20200819, end: 20201003
  44. POTASSIUM BICARBONATE [Concomitant]
     Active Substance: POTASSIUM BICARBONATE
     Route: 042
     Dates: start: 20200917, end: 20200919
  45. POTASSIUM CHLORIDE [Concomitant]
     Active Substance: POTASSIUM CHLORIDE
     Route: 042
     Dates: start: 20200906, end: 20200906
  46. POTASSIUM CHLORIDE [Concomitant]
     Active Substance: POTASSIUM CHLORIDE
     Route: 048
     Dates: start: 20200906, end: 20201002
  47. PSEUDOEPHEDRINE. [Concomitant]
     Active Substance: PSEUDOEPHEDRINE HYDROCHLORIDE
     Route: 002
     Dates: start: 20200918, end: 20200918
  48. ROCURONIUM BROMIDE [Concomitant]
     Active Substance: ROCURONIUM BROMIDE
     Route: 042
     Dates: start: 20200819, end: 20200915
  49. ROCURONIUM BROMIDE [Concomitant]
     Active Substance: ROCURONIUM BROMIDE
     Route: 042
     Dates: start: 20200819, end: 20200922
  50. MUPIROCIN [Concomitant]
     Active Substance: MUPIROCIN
     Route: 045
     Dates: start: 20200819, end: 20200926
  51. EQUALINE OXYMETAZOLINE HCL NASAL DECONGESTANT NO DRIP [Concomitant]
     Active Substance: OXYMETAZOLINE HYDROCHLORIDE
     Dates: start: 20200820, end: 20200820
  52. MIRALAX [Concomitant]
     Active Substance: POLYETHYLENE GLYCOL 3350
     Route: 048
     Dates: start: 20200819, end: 20201003
  53. PHENYLEPHRINE [Concomitant]
     Active Substance: PHENYLEPHRINE HYDROCHLORIDE
     Route: 042
     Dates: start: 20200819, end: 20200819
  54. METOLAZONE [Concomitant]
     Active Substance: METOLAZONE
     Route: 002
     Dates: start: 20200831, end: 20200910
  55. METOLAZONE [Concomitant]
     Active Substance: METOLAZONE
     Route: 002
     Dates: start: 20200911, end: 20200921
  56. METOPROLOL [Concomitant]
     Active Substance: METOPROLOL
     Route: 002
     Dates: start: 20200829, end: 20201003
  57. EPHEDRINE [Concomitant]
     Active Substance: EPHEDRINE
     Dates: start: 20200918, end: 20200918
  58. METOPROLOL [Concomitant]
     Active Substance: METOPROLOL
     Route: 042
     Dates: start: 20200827, end: 20200925
  59. MEROPENEM [Concomitant]
     Active Substance: MEROPENEM
     Dates: start: 20200917, end: 20200925
  60. MEPERIDINE HYDROCHLORIDE [Concomitant]
     Active Substance: MEPERIDINE HYDROCHLORIDE
     Dates: start: 20200915, end: 20200915
  61. MAGNESIUM OXIDE 400MG [Concomitant]
     Active Substance: MAGNESIUM OXIDE
     Route: 002
     Dates: start: 20200911, end: 20200924
  62. MAGNESIUM SULFATE [Concomitant]
     Active Substance: MAGNESIUM SULFATE
     Route: 042
     Dates: start: 20200915, end: 20200915
  63. LIDOCAINE HCI AND EPINEPHRINE [Concomitant]
     Active Substance: EPINEPHRINE\LIDOCAINE HYDROCHLORIDE
     Route: 042
     Dates: start: 20200906, end: 20200906
  64. XYLOCAINE(R) -MPF (LIDOCAINE HCI AND EPINEPHRINE) [Concomitant]
     Active Substance: EPINEPHRINE BITARTRATE\LIDOCAINE HYDROCHLORIDE ANHYDROUS
     Route: 042
     Dates: start: 20200826, end: 20201001
  65. XYLOCAINE(R) -MPF (LIDOCAINE HCI AND EPINEPHRINE) [Concomitant]
     Active Substance: EPINEPHRINE BITARTRATE\LIDOCAINE HYDROCHLORIDE ANHYDROUS
     Route: 042
     Dates: start: 20200918, end: 20200918
  66. LIDOCAINE VISCOUS [Concomitant]
     Active Substance: LIDOCAINE HYDROCHLORIDE
     Route: 048
     Dates: start: 20200919, end: 20200922
  67. LIDOCAINE [Concomitant]
     Active Substance: LIDOCAINE
     Route: 042
     Dates: start: 20200825, end: 20200826
  68. KETAMINE HYDROCHLORIDE [Concomitant]
     Active Substance: KETAMINE HYDROCHLORIDE
     Dates: start: 20200922, end: 20200922
  69. LACTULOSE [Concomitant]
     Active Substance: LACTULOSE
     Route: 048
     Dates: start: 20200925, end: 20200926
  70. LABETALOL [Concomitant]
     Active Substance: LABETALOL\LABETALOL HYDROCHLORIDE
     Route: 042
     Dates: start: 20200924, end: 20200924
  71. EPOPROSTENOL [Concomitant]
     Active Substance: EPOPROSTENOL
     Route: 055
     Dates: start: 20200819, end: 20200819
  72. ETOMIDATE [Interacting]
     Active Substance: ETOMIDATE
     Route: 042
     Dates: start: 20200819, end: 20200819
  73. HALOPERIDOL [Concomitant]
     Active Substance: HALOPERIDOL
     Route: 042
     Dates: start: 20200923, end: 20200924
  74. HEPARIN [Concomitant]
     Active Substance: HEPARIN SODIUM
     Route: 042
     Dates: start: 20200819, end: 20200819
  75. EPHEDRINE [Concomitant]
     Active Substance: EPHEDRINE
     Route: 042
     Dates: start: 20200918, end: 20200918
  76. FENTANYL CITRATE [Concomitant]
     Active Substance: FENTANYL CITRATE
     Route: 042
     Dates: start: 20200819, end: 20200908
  77. FUROSEMIDE [Concomitant]
     Active Substance: FUROSEMIDE
     Dates: start: 20200819, end: 20201002
  78. GLYCOPYRROLATE [Concomitant]
     Active Substance: GLYCOPYRROLATE
     Route: 042
     Dates: start: 20200827, end: 20200929
  79. FAMOTIDINE [Concomitant]
     Active Substance: FAMOTIDINE
     Route: 042
     Dates: start: 20200819, end: 20200819
  80. HYDRALAZINE [Concomitant]
     Active Substance: HYDRALAZINE HYDROCHLORIDE
     Route: 042
     Dates: start: 20200929, end: 20201003
  81. CODEINE-GUAIFENESIN [Concomitant]
     Active Substance: CODEINE PHOSPHATE\GUAIFENESIN
     Route: 048
     Dates: start: 20200918, end: 20201003
  82. GUAIFENESIN DM [Concomitant]
     Active Substance: DEXTROMETHORPHAN\DEXTROMETHORPHAN HYDROBROMIDE\GUAIFENESIN
     Route: 048
     Dates: start: 20200910, end: 20201002
  83. HYDROMORPHONE HCL [Concomitant]
     Active Substance: HYDROMORPHONE HYDROCHLORIDE
     Route: 042
     Dates: start: 20200819, end: 20200819
  84. IPRATROPIUM BROMIDE [Concomitant]
     Active Substance: IPRATROPIUM BROMIDE
     Route: 055
     Dates: start: 20200824, end: 20200922
  85. INSULIN LISPRO [Concomitant]
     Active Substance: INSULIN LISPRO
     Route: 042
     Dates: start: 20200919, end: 20201002
  86. ANTITUSSIVE HYDROCODONE BITARTRATE AND HOMATROPINE METHYLBROMIDE [Concomitant]
     Active Substance: HOMATROPINE METHYLBROMIDE\HYDROCODONE BITARTRATE
     Route: 048
     Dates: start: 20200823, end: 20201002
  87. PULMOZYME [Concomitant]
     Active Substance: DORNASE ALFA
     Route: 055
     Dates: start: 20201002, end: 20201003
  88. PRECEDEX [Concomitant]
     Active Substance: DEXMEDETOMIDINE HYDROCHLORIDE
     Route: 042
     Dates: start: 20200824, end: 20200825
  89. NEXTERONE (AMIODARONE HCI) [Concomitant]
     Active Substance: AMIODARONE HYDROCHLORIDE
     Route: 042
     Dates: start: 20200827, end: 20200927
  90. CORDARONE [Concomitant]
     Active Substance: AMIODARONE HYDROCHLORIDE
     Route: 042
     Dates: start: 20200827, end: 20200927
  91. FENTANYL CITRATE [Concomitant]
     Active Substance: FENTANYL CITRATE
     Route: 042
     Dates: start: 20200819, end: 20200927
  92. MIDAZOLAM [Concomitant]
     Active Substance: MIDAZOLAM
     Route: 042
     Dates: start: 20200819, end: 20200924
  93. MIDAZOLAM [Concomitant]
     Active Substance: MIDAZOLAM
     Route: 045
     Dates: start: 20200829, end: 20200928
  94. NOREPINEPHRINE BITARTRATE [Concomitant]
     Active Substance: NOREPINEPHRINE BITARTRATE
     Route: 042
     Dates: start: 10100819, end: 20200821
  95. LUBRICANT EYE DROPS [Concomitant]
     Active Substance: POLYETHYLENE GLYCOL 400\PROPYLENE GLYCOL
     Route: 047
     Dates: start: 20200819, end: 20200819
  96. CLEOCIN HYDROCHLORIDE [Concomitant]
     Active Substance: CLINDAMYCIN HYDROCHLORIDE
     Route: 042
     Dates: start: 20200906, end: 20200906
  97. CLONAZEPAM [Concomitant]
     Active Substance: CLONAZEPAM
     Route: 002
     Dates: start: 20200923, end: 20200930
  98. DEXMEDETOMIDINE HYDROCHLORIDE [Concomitant]
     Active Substance: DEXMEDETOMIDINE HYDROCHLORIDE
     Route: 042
     Dates: start: 20200824, end: 20200825
  99. DOCUSATE SODIUM [Concomitant]
     Active Substance: DOCUSATE SODIUM
     Route: 048
     Dates: start: 20200819, end: 20201003
  100. SODIUM CHLORIDE [Concomitant]
     Active Substance: SODIUM CHLORIDE
     Route: 042
     Dates: start: 20200921, end: 20200921
  101. POTASSIUM CHLORIDE [Concomitant]
     Active Substance: POTASSIUM CHLORIDE
     Route: 042
     Dates: start: 20200821, end: 20201003
  102. KLOR-CON [Concomitant]
     Active Substance: POTASSIUM CHLORIDE
     Route: 048
     Dates: start: 20200821, end: 20200917
  103. ROCURONIUM BROMIDE [Concomitant]
     Active Substance: ROCURONIUM BROMIDE
     Route: 042
     Dates: start: 20200819, end: 20200819
  104. VANCOMYCIN HYDROCHLORIDE [Concomitant]
     Active Substance: VANCOMYCIN HYDROCHLORIDE
     Route: 042
     Dates: start: 20200819, end: 20200821
  105. VANCOMYCIN HYDROCHLORIDE [Concomitant]
     Active Substance: VANCOMYCIN HYDROCHLORIDE
     Route: 042
     Dates: start: 20200821, end: 20200821
  106. K PHOS NEUTRAL [Concomitant]
     Active Substance: POTASSIUM PHOSPHATE, MONOBASIC\SODIUM PHOSPHATE, DIBASIC, ANHYDROUS\SODIUM PHOSPHATE, MONOBASIC, MON
     Route: 048
     Dates: start: 20200822, end: 20200925
  107. ROXICODONE [Concomitant]
     Active Substance: OXYCODONE HYDROCHLORIDE
     Route: 002
     Dates: start: 20200915, end: 20201001
  108. ROXICODONE [Concomitant]
     Active Substance: OXYCODONE HYDROCHLORIDE
     Route: 002
     Dates: start: 20200923, end: 20200928
  109. HEPARIN SODIUM AND SODIUM CHLORIDE [Concomitant]
     Active Substance: HEPARIN SODIUM
     Route: 042
     Dates: start: 20200819, end: 20200926
  110. KETAMINE HYDROCHLORIDE [Concomitant]
     Active Substance: KETAMINE HYDROCHLORIDE
     Route: 042
     Dates: start: 20200922, end: 20200922
  111. KETAMINE HYDROCHLORIDE [Concomitant]
     Active Substance: KETAMINE HYDROCHLORIDE
     Route: 042
     Dates: start: 20200819, end: 20200925
  112. METOPROLOL [Concomitant]
     Active Substance: METOPROLOL
     Route: 002
     Dates: start: 20200910, end: 20201003
  113. MAGNESIUM SULFATE IN WATER [Concomitant]
     Active Substance: MAGNESIUM SULFATE HEPTAHYDRATE
     Route: 042
     Dates: start: 20200827, end: 20200927
  114. LIDOCAINE HYDROCHLORIDE [Concomitant]
     Active Substance: LIDOCAINE HYDROCHLORIDE
     Route: 042
     Dates: start: 20200820, end: 20200820
  115. LINEZOLID [Concomitant]
     Active Substance: LINEZOLID
     Route: 042
     Dates: start: 20200828, end: 20200831
  116. LINEZOLID [Concomitant]
     Active Substance: LINEZOLID
     Route: 002
     Dates: start: 20200918, end: 20200925
  117. DEXTROSE MONOHYDRATE [Concomitant]
     Active Substance: DEXTROSE MONOHYDRATE
     Route: 042
     Dates: start: 20200906, end: 20200906
  118. DEXTROSE MONOHYDRATE [Concomitant]
     Active Substance: DEXTROSE MONOHYDRATE
     Route: 042
     Dates: start: 20200825, end: 20200921
  119. DEXTROSE MONOHYDRATE [Concomitant]
     Active Substance: DEXTROSE MONOHYDRATE
     Route: 042
     Dates: start: 20200928, end: 20200929
  120. DEXTROSE MONOHYDRATE [Concomitant]
     Active Substance: DEXTROSE MONOHYDRATE
     Route: 042
     Dates: start: 20200820, end: 20200821

REACTIONS (7)
  - Pain [Unknown]
  - Dyspnoea [Unknown]
  - COVID-19 [Unknown]
  - Lung assist device therapy [Unknown]
  - Burkholderia test positive [Unknown]
  - Respiratory failure [Unknown]
  - Endotracheal intubation [Unknown]

NARRATIVE: CASE EVENT DATE: 20200812
